FAERS Safety Report 13052991 (Version 1)
Quarter: 2016Q4

REPORT INFORMATION
  Report Type: Spontaneous
  Country: BE (occurrence: BE)
  Receive Date: 20161222
  Receipt Date: 20161222
  Transmission Date: 20170207
  Serious: Yes (Hospitalization)
  Sender: FDA-Public Use
  Company Number: BE-ROCHE-1869090

PATIENT
  Age: 42 Year
  Sex: Female
  Weight: 99 kg

DRUGS (6)
  1. VALCYTE [Concomitant]
     Active Substance: VALGANCICLOVIR HYDROCHLORIDE
     Route: 065
  2. CYMEVENE [Suspect]
     Active Substance: GANCICLOVIR
     Indication: CYTOMEGALOVIRUS INFECTION
     Route: 065
  3. CYTARABINE. [Concomitant]
     Active Substance: CYTARABINE
  4. MABTHERA [Suspect]
     Active Substance: RITUXIMAB
     Indication: EPSTEIN-BARR VIRUS INFECTION
     Route: 065
     Dates: start: 201608
  5. IDARUBICINE [Concomitant]
     Active Substance: IDARUBICIN
  6. DAUNORUBICIN [Concomitant]
     Active Substance: DAUNORUBICIN

REACTIONS (5)
  - Tuberculosis [Recovering/Resolving]
  - Off label use [Unknown]
  - Epstein-Barr virus infection [Not Recovered/Not Resolved]
  - Drug ineffective [Unknown]
  - Pneumonia [Unknown]

NARRATIVE: CASE EVENT DATE: 201608
